FAERS Safety Report 6128064-8 (Version None)
Quarter: 2009Q1

REPORT INFORMATION
  Report Type: 
  Country: None (occurrence: None)
  Receive Date: 20090323
  Receipt Date: 20090310
  Transmission Date: 20090719
  Serious: Yes (Hospitalization)
  Sender: FDA-Public Use
  Company Number: US-JNJFOC-20090105466

PATIENT
  Sex: Male
  Weight: 93.9 kg

DRUGS (10)
  1. REMICADE [Suspect]
     Dosage: ^5MG^
     Route: 042
  2. REMICADE [Suspect]
     Dosage: ^5MG^
     Route: 042
  3. REMICADE [Suspect]
     Route: 042
  4. REMICADE [Suspect]
     Route: 042
  5. REMICADE [Suspect]
     Route: 042
  6. REMICADE [Suspect]
     Route: 042
  7. REMICADE [Suspect]
     Indication: COLITIS ULCERATIVE
     Route: 042
  8. REMICADE [Suspect]
     Indication: CROHN'S DISEASE
     Dosage: ^5MG^
     Route: 042
  9. TYLENOL [Concomitant]
     Indication: PREMEDICATION
     Route: 048
  10. BENADRYL [Concomitant]
     Indication: PREMEDICATION
     Route: 042

REACTIONS (2)
  - POLYARTHRITIS [None]
  - RHABDOMYOLYSIS [None]
